FAERS Safety Report 4588033-6 (Version None)
Quarter: 2005Q1

REPORT INFORMATION
  Report Type: 
  Country: None (occurrence: None)
  Receive Date: 20050216
  Receipt Date: 20050203
  Transmission Date: 20050727
  Serious: Yes (Hospitalization)
  Sender: FDA-Public Use
  Company Number: 2005024182

PATIENT
  Age: 60 Year
  Sex: Male
  Weight: 85 kg

DRUGS (4)
  1. SOMATROPIN (SOMATROPIN) [Suspect]
     Indication: HYPOPITUITARISM
     Dosage: SUBCUTANEOUS
     Route: 058
     Dates: start: 19960419
  2. CORTISONE (CORTISONE) [Concomitant]
  3. TESTOSTERONE ENANTHATE [Concomitant]
  4. METOPROLOL TARTRATE [Concomitant]

REACTIONS (1)
  - HYPERTENSION [None]
